FAERS Safety Report 18464923 (Version 1)
Quarter: 2020Q4

REPORT INFORMATION
  Report Type: Other
  Country: US (occurrence: US)
  Receive Date: 20201105
  Receipt Date: 20201105
  Transmission Date: 20210114
  Serious: Yes (Other)
  Sender: FDA-Public Use
  Company Number: US-YUNG SHIN PHARMACEUTICAL IND.  CO., LTD.-2093607

PATIENT
  Age: 60 Year
  Sex: Female
  Weight: 109.09 kg

DRUGS (19)
  1. ATORVASTATIN [Concomitant]
     Active Substance: ATORVASTATIN
     Route: 048
  2. UNSPECIFIED MULTIVITAMIN [Concomitant]
     Route: 048
  3. TYLENOL ARTHRITIS 650MG ER [Concomitant]
     Route: 048
  4. SILYMARIN MILK THISTLE EXTRACT 175MG RAPID RELEASE CAPSULES [Suspect]
     Active Substance: DIETARY SUPPLEMENT\HERBALS\MILK THISTLE
     Route: 048
     Dates: end: 20200426
  5. 81 MG ^BABY^ ASPIRIN [Concomitant]
     Route: 048
  6. UNSPECIFIED FISH OIL [Concomitant]
     Route: 048
  7. UNSPECIFIED SELENIUM [Concomitant]
     Route: 048
  8. BENICAR [Suspect]
     Active Substance: OLMESARTAN MEDOXOMIL
     Route: 048
  9. UNSPECIFIED VITAMIN C [Concomitant]
     Route: 048
  10. UNSPECIFIED FES04 [Concomitant]
     Route: 048
  11. UNSPECIFIED TURMERIC [Concomitant]
     Route: 048
  12. MELOXICAM. [Suspect]
     Active Substance: MELOXICAM
     Route: 048
  13. CINNAMON WITH HIGH POTENCY CHROMIUM 1000MG RAPID RELEASE CAPSULES [Suspect]
     Active Substance: DIETARY SUPPLEMENT
     Route: 048
     Dates: end: 20200426
  14. METFORMIN 500MG [Suspect]
     Active Substance: METFORMIN HYDROCHLORIDE
     Route: 048
  15. DOCTOR^S TRUST RED YEAST RICE 1200MG TABLETS [Suspect]
     Active Substance: DIETARY SUPPLEMENT
     Route: 048
     Dates: end: 20200426
  16. UNSPECIFIED CALCIUM PLUS VITAMIN D [Concomitant]
     Route: 048
  17. UNSPECIFIED GLUCOSAMINE CHONDROITIN [Concomitant]
     Route: 048
  18. FLUSH FREE NIACIN INOSITOL NICOTINATE 500MG RAPID RELEASE CAPSULES [Suspect]
     Active Substance: INOSITOL NIACINATE
     Route: 048
     Dates: end: 20200426
  19. GLIMEPIRIDE 2MG [Suspect]
     Active Substance: GLIMEPIRIDE
     Route: 048

REACTIONS (2)
  - Oliguria [Recovered/Resolved]
  - Nephrolithiasis [Unknown]
